FAERS Safety Report 6343714-9 (Version None)
Quarter: 2009Q3

REPORT INFORMATION
  Report Type: 
  Country: None (occurrence: None)
  Receive Date: 20090908
  Receipt Date: 20090902
  Transmission Date: 20100115
  Serious: Yes (Other)
  Sender: FDA-Public Use
  Company Number: A0805686A

PATIENT
  Age: 77 Year
  Sex: Male

DRUGS (9)
  1. ADVAIR HFA [Suspect]
     Indication: CHRONIC OBSTRUCTIVE PULMONARY DISEASE
     Dosage: 1PUFF PER DAY
     Route: 055
     Dates: start: 20090601, end: 20090831
  2. SPIRIVA [Concomitant]
  3. KEPPRA [Concomitant]
  4. RITALIN [Concomitant]
  5. NEXIUM [Concomitant]
  6. DETROL LA [Concomitant]
  7. TRAVEL SICKNESS TABLETS [Concomitant]
  8. PLAVIX [Concomitant]
  9. PROAIR HFA [Concomitant]

REACTIONS (12)
  - BRONCHOSPASM [None]
  - CHEST PAIN [None]
  - DYSPHAGIA [None]
  - ERYTHEMA OF EYELID [None]
  - EYE DISCHARGE [None]
  - EYELID PAIN [None]
  - FEELING HOT [None]
  - HEART RATE INCREASED [None]
  - OCULAR HYPERAEMIA [None]
  - ODYNOPHAGIA [None]
  - VISION BLURRED [None]
  - VISUAL IMPAIRMENT [None]
